FAERS Safety Report 4954297-X (Version None)
Quarter: 2006Q1

REPORT INFORMATION
  Report Type: 
  Country: None (occurrence: None)
  Receive Date: 20060327
  Receipt Date: 20060314
  Transmission Date: 20060701
  Serious: Yes (Hospitalization, Other)
  Sender: FDA-Public Use
  Company Number: JP-MERCK-0603USA02660

PATIENT
  Age: 88 Year
  Sex: Female

DRUGS (3)
  1. CLINORIL [Suspect]
     Indication: PAIN
     Route: 048
     Dates: start: 20060112, end: 20060112
  2. CLINORIL [Suspect]
     Route: 048
  3. EPERISONE HYDROCHLORIDE [Suspect]
     Route: 065

REACTIONS (5)
  - BLISTER [None]
  - ERYTHEMA [None]
  - EXCORIATION [None]
  - SKIN ULCER [None]
  - TOXIC EPIDERMAL NECROLYSIS [None]
